FAERS Safety Report 6519792-0 (Version None)
Quarter: 2009Q4

REPORT INFORMATION
  Report Type: 
  Country: None (occurrence: None)
  Receive Date: 20091228
  Receipt Date: 20091228
  Transmission Date: 20100525
  Serious: No
  Sender: FDA-Public Use
  Company Number: None

PATIENT
  Sex: Female
  Weight: 77.11 kg

DRUGS (1)
  1. LORAZEPAM [Suspect]
     Dosage: 2 MG 3 TIMS A DAY PO
     Route: 048
     Dates: start: 20091215, end: 20091218

REACTIONS (3)
  - ABNORMAL BEHAVIOUR [None]
  - IRRITABILITY [None]
  - RESTLESSNESS [None]
